FAERS Safety Report 18192584 (Version 1)
Quarter: 2020Q3

REPORT INFORMATION
  Report Type: Spontaneous
  Country: US (occurrence: US)
  Receive Date: 20200825
  Receipt Date: 20200825
  Transmission Date: 20201103
  Serious: Yes (Other)
  Sender: FDA-Public Use
  Company Number: None

PATIENT
  Age: 46 Year
  Sex: Female
  Weight: 59 kg

DRUGS (2)
  1. TEPROTUMUMAB. [Suspect]
     Active Substance: TEPROTUMUMAB
     Indication: EYE DISORDER
     Dosage: ?          OTHER FREQUENCY:Q3 WEEKS;?
     Route: 041
     Dates: start: 20200409, end: 20200811
  2. TEPROTUMUMAB. [Suspect]
     Active Substance: TEPROTUMUMAB
     Indication: THYROID DISORDER
     Dosage: ?          OTHER FREQUENCY:Q3 WEEKS;?
     Route: 041
     Dates: start: 20200409, end: 20200811

REACTIONS (5)
  - Infusion related reaction [None]
  - Gastrointestinal pain [None]
  - Inflammatory bowel disease [None]
  - Haematochezia [None]
  - Defaecation urgency [None]

NARRATIVE: CASE EVENT DATE: 20200811
